FAERS Safety Report 9020385 (Version 1)
Quarter: 2013Q1

REPORT INFORMATION
  Report Type: Spontaneous
  Country: US (occurrence: US)
  Receive Date: 20130119
  Receipt Date: 20130119
  Transmission Date: 20140127
  Serious: No
  Sender: FDA-Public Use
  Company Number: US-ALLERGAN-1208929US

PATIENT
  Age: 46 Year
  Sex: Female

DRUGS (2)
  1. BOTOX COSMETIC [Suspect]
     Indication: SKIN WRINKLING
     Dosage: UNK
     Dates: start: 20120523, end: 20120523
  2. JUVEDERM [Suspect]
     Indication: SCAR
     Dosage: UNK
     Dates: start: 20120523, end: 20120523

REACTIONS (5)
  - Cystitis [Unknown]
  - Urinary incontinence [Unknown]
  - Skin tightness [Not Recovered/Not Resolved]
  - Eyelid ptosis [Not Recovered/Not Resolved]
  - Injection site reaction [Not Recovered/Not Resolved]
